FAERS Safety Report 13367363 (Version 10)
Quarter: 2018Q4

REPORT INFORMATION
  Report Type: Report from Study
  Country: US (occurrence: US)
  Receive Date: 20170324
  Receipt Date: 20181109
  Transmission Date: 20190204
  Serious: Yes (Death, Hospitalization)
  Sender: FDA-Public Use
  Company Number: US-ROCHE-1892725

PATIENT
  Age: 73 Year
  Sex: Male

DRUGS (77)
  1. PANTOPRAZOLE [Concomitant]
     Active Substance: PANTOPRAZOLE
     Route: 065
     Dates: start: 20170220, end: 20170317
  2. SODIUM CHLORIDE. [Concomitant]
     Active Substance: SODIUM CHLORIDE
     Indication: ACUTE KIDNEY INJURY
     Route: 065
     Dates: start: 20170109, end: 20170110
  3. TRAZODONE [Concomitant]
     Active Substance: TRAZODONE HYDROCHLORIDE
     Indication: INSOMNIA
     Route: 065
     Dates: start: 20170211, end: 20170211
  4. NOREPINEPHRINE. [Concomitant]
     Active Substance: NOREPINEPHRINE
     Indication: CHEST PAIN
     Route: 065
     Dates: start: 20170224, end: 20170224
  5. CITRIC ACID/SODIUM CITRATE [Concomitant]
     Indication: METABOLIC ACIDOSIS
     Route: 065
     Dates: start: 20170306, end: 20170317
  6. SODIUM CHLORIDE. [Concomitant]
     Active Substance: SODIUM CHLORIDE
     Indication: BLOOD CREATININE INCREASED
     Route: 065
     Dates: start: 20170126, end: 20170126
  7. SODIUM CHLORIDE. [Concomitant]
     Active Substance: SODIUM CHLORIDE
     Indication: MYASTHENIA GRAVIS
     Route: 065
     Dates: start: 20170219, end: 20170316
  8. ACETAMINOPHEN. [Concomitant]
     Active Substance: ACETAMINOPHEN
     Route: 065
     Dates: start: 20170315, end: 20170315
  9. CHLORHEXIDINE [Concomitant]
     Active Substance: CHLORHEXIDINE
     Indication: ENDOTRACHEAL INTUBATION
     Route: 065
     Dates: start: 20170222, end: 20170317
  10. HEPARIN SODIUM. [Concomitant]
     Active Substance: HEPARIN SODIUM
     Indication: THROMBOSIS PROPHYLAXIS
     Route: 065
     Dates: start: 20170221, end: 20170311
  11. ALBUMIN [Concomitant]
     Active Substance: ALBUMIN HUMAN
     Indication: URINE OUTPUT DECREASED
  12. DEXTROSE. [Concomitant]
     Active Substance: DEXTROSE
     Indication: BLOOD GLUCOSE DECREASED
  13. HYDROMORPHONE [Concomitant]
     Active Substance: HYDROMORPHONE
     Indication: PAIN
     Route: 065
     Dates: start: 20170307, end: 20170307
  14. EPINEPHRINE/LIDOCAINE [Concomitant]
     Active Substance: EPINEPHRINE\LIDOCAINE
     Indication: PAIN
     Route: 065
     Dates: start: 20170315, end: 20170315
  15. ATORVASTATIN [Concomitant]
     Active Substance: ATORVASTATIN
     Indication: HYPERCHOLESTEROLAEMIA
     Route: 065
     Dates: start: 1998
  16. SODIUM CHLORIDE. [Concomitant]
     Active Substance: SODIUM CHLORIDE
     Indication: HYPERCALCAEMIA
     Route: 065
     Dates: start: 20170209, end: 20170209
  17. MAGNESIUM SULFATE. [Concomitant]
     Active Substance: MAGNESIUM SULFATE
     Indication: BLOOD MAGNESIUM
  18. POTASSIUM CHLORIDE. [Concomitant]
     Active Substance: POTASSIUM CHLORIDE
     Indication: BLOOD POTASSIUM DECREASED
     Route: 065
     Dates: start: 20170221, end: 20170315
  19. TEMAZEPAM. [Concomitant]
     Active Substance: TEMAZEPAM
     Indication: INSOMNIA
     Route: 065
     Dates: start: 20170222, end: 20170222
  20. VANCOMYCIN [Concomitant]
     Active Substance: VANCOMYCIN
     Indication: PNEUMONIA
     Route: 065
     Dates: start: 20170220, end: 20170225
  21. CEFEPIME [Concomitant]
     Active Substance: CEFEPIME HYDROCHLORIDE
     Indication: SEPSIS
     Route: 065
     Dates: start: 20170314, end: 20170317
  22. DEXTROSE. [Concomitant]
     Active Substance: DEXTROSE
     Indication: HYPERCALCAEMIA
     Route: 065
     Dates: start: 20170228, end: 20170311
  23. MORPHINE [Concomitant]
     Active Substance: MORPHINE
     Indication: PAIN
     Route: 065
     Dates: start: 20170317, end: 20170318
  24. VANCOMYCIN [Concomitant]
     Active Substance: VANCOMYCIN
     Indication: SEPSIS
     Route: 065
     Dates: start: 20170314, end: 20170315
  25. HYDRALAZINE [Concomitant]
     Active Substance: HYDRALAZINE HYDROCHLORIDE
     Indication: HYPERTENSION
     Route: 065
     Dates: start: 2015
  26. CEFTRIAXONE. [Concomitant]
     Active Substance: CEFTRIAXONE
     Indication: INFECTION PROPHYLAXIS
     Route: 065
     Dates: start: 20170108, end: 20170112
  27. FUROSEMIDE. [Concomitant]
     Active Substance: FUROSEMIDE
     Indication: OEDEMA
  28. LORAZEPAM. [Concomitant]
     Active Substance: LORAZEPAM
     Indication: ANXIETY
     Route: 065
     Dates: start: 20170216
  29. ACETAMINOPHEN. [Concomitant]
     Active Substance: ACETAMINOPHEN
     Indication: PYREXIA
     Route: 065
     Dates: start: 20170223, end: 20170226
  30. ACETYLCYSTEINE. [Concomitant]
     Active Substance: ACETYLCYSTEINE
     Indication: PNEUMONIA
     Route: 065
     Dates: start: 20170301, end: 20170316
  31. CALCITONIN [Concomitant]
     Active Substance: CALCITONIN
     Indication: HYPERCALCAEMIA
     Route: 065
     Dates: start: 20170227, end: 20170302
  32. DEXTROSE. [Concomitant]
     Active Substance: DEXTROSE
     Indication: BLOOD GLUCOSE DECREASED
  33. FENTANYL. [Concomitant]
     Active Substance: FENTANYL
     Indication: PAIN
     Route: 065
     Dates: start: 20170220, end: 20170316
  34. ASPIRIN. [Concomitant]
     Active Substance: ASPIRIN
     Indication: CORONARY ARTERY DISEASE
     Route: 065
     Dates: start: 2014
  35. CHOLECALCIFEROL [Concomitant]
     Active Substance: CHOLECALCIFEROL
     Route: 065
     Dates: start: 2007, end: 20070218
  36. FUROSEMIDE. [Concomitant]
     Active Substance: FUROSEMIDE
     Indication: ACUTE KIDNEY INJURY
     Route: 065
     Dates: start: 20170110, end: 20170110
  37. FUROSEMIDE. [Concomitant]
     Active Substance: FUROSEMIDE
     Indication: BLOOD CREATININE INCREASED
     Route: 065
     Dates: start: 20170224, end: 20170315
  38. GLYCERIN. [Concomitant]
     Active Substance: GLYCERIN
     Indication: DRY MOUTH
     Route: 065
     Dates: start: 20170110, end: 20170110
  39. DOCUSATE [Concomitant]
     Active Substance: DOCUSATE
     Indication: CONSTIPATION
     Route: 065
     Dates: start: 20170209, end: 20170209
  40. POLYETHYLENE GLYCOL [Concomitant]
     Active Substance: POLYETHYLENE GLYCOLS
     Indication: CONSTIPATION
     Route: 065
     Dates: start: 20170209, end: 20170209
  41. DEXTROSE. [Concomitant]
     Active Substance: DEXTROSE
     Indication: HYPERCALCAEMIA
     Route: 065
     Dates: start: 20170228, end: 20170311
  42. NOREPINEPHRINE. [Concomitant]
     Active Substance: NOREPINEPHRINE
     Route: 065
     Dates: start: 20170310, end: 20170310
  43. NYSTATIN. [Concomitant]
     Active Substance: NYSTATIN
     Indication: ORAL CANDIDIASIS
     Route: 065
     Dates: start: 20170219, end: 20170219
  44. PEG 3350 + ELECTROLYTES [Concomitant]
     Indication: COLONOSCOPY
     Route: 065
     Dates: start: 20170309, end: 20170309
  45. QUETIAPINE. [Concomitant]
     Active Substance: QUETIAPINE
     Indication: AGITATION
     Route: 065
     Dates: start: 20170312, end: 20170316
  46. SODIUM PHOSPHATE [Concomitant]
     Active Substance: SODIUM PHOSPHATE
     Indication: BLOOD PHOSPHORUS DECREASED
     Route: 065
     Dates: start: 20170304, end: 20170305
  47. ATEZOLIZUMAB. [Suspect]
     Active Substance: ATEZOLIZUMAB
     Indication: NEOPLASM
     Dosage: MOST RECENT DOSE PRIOR TO AE ONSET:  26/JAN/2017 AT 13:10
     Route: 042
     Dates: start: 20170105
  48. LEVOTHYROXINE. [Concomitant]
     Active Substance: LEVOTHYROXINE
     Indication: HYPOTHYROIDISM
     Route: 065
     Dates: start: 2007
  49. SODIUM CHLORIDE. [Concomitant]
     Active Substance: SODIUM CHLORIDE
     Indication: TRANSFUSION
  50. DOCUSATE [Concomitant]
     Active Substance: DOCUSATE
     Route: 065
     Dates: start: 20170221, end: 20170302
  51. LORAZEPAM. [Concomitant]
     Active Substance: LORAZEPAM
     Indication: INSOMNIA
     Route: 065
     Dates: start: 20170211, end: 20170211
  52. CHLORHEXIDINE [Concomitant]
     Active Substance: CHLORHEXIDINE
     Indication: RESPIRATORY FAILURE
  53. ETOMIDATE. [Concomitant]
     Active Substance: ETOMIDATE
     Indication: ENDOTRACHEAL INTUBATION
     Route: 065
     Dates: start: 20170221, end: 20170221
  54. MAGNESIUM SULFATE. [Concomitant]
     Active Substance: MAGNESIUM SULFATE
     Indication: BLOOD CREATININE INCREASED
     Route: 065
     Dates: start: 20170221, end: 20170315
  55. POTASSIUM CHLORIDE. [Concomitant]
     Active Substance: POTASSIUM CHLORIDE
     Indication: BLOOD POTASSIUM
  56. ALBUMIN [Concomitant]
     Active Substance: ALBUMIN HUMAN
     Indication: OEDEMA
     Route: 065
     Dates: start: 20170307, end: 20170312
  57. MIDAZOLAM [Concomitant]
     Active Substance: MIDAZOLAM HYDROCHLORIDE
     Indication: COLONOSCOPY
     Route: 065
     Dates: start: 20170308, end: 20170310
  58. VANCOMYCIN [Concomitant]
     Active Substance: VANCOMYCIN
     Indication: PNEUMONIA
     Route: 065
     Dates: start: 20170220, end: 20170225
  59. FUROSEMIDE. [Concomitant]
     Active Substance: FUROSEMIDE
     Indication: URINE OUTPUT DECREASED
  60. CALCIUM CARBONATE. [Concomitant]
     Active Substance: CALCIUM CARBONATE
     Indication: DYSPEPSIA
     Route: 065
     Dates: start: 20170110, end: 20170110
  61. ACETYLCYSTEINE. [Concomitant]
     Active Substance: ACETYLCYSTEINE
     Indication: PNEUMONIA
  62. ENOXAPARIN [Concomitant]
     Active Substance: ENOXAPARIN
     Indication: THROMBOSIS PROPHYLAXIS
     Route: 065
     Dates: start: 20170220, end: 20170221
  63. INSULIN ASPART [Concomitant]
     Active Substance: INSULIN ASPART
     Route: 065
     Dates: start: 20170221, end: 20170312
  64. PANTOPRAZOLE [Concomitant]
     Active Substance: PANTOPRAZOLE
     Indication: PROPHYLAXIS
     Route: 065
     Dates: start: 20170220, end: 20170317
  65. METRONIDAZOLE. [Concomitant]
     Active Substance: METRONIDAZOLE
     Indication: INFECTION
     Route: 065
     Dates: start: 20170308, end: 20170310
  66. NITROGLYCERIN. [Concomitant]
     Active Substance: NITROGLYCERIN
     Indication: CHEST PAIN
     Route: 065
     Dates: start: 20170307, end: 20170311
  67. PHYTONADIONE. [Concomitant]
     Active Substance: PHYTONADIONE
     Indication: COAGULOPATHY
     Route: 065
     Dates: start: 20170309, end: 20170313
  68. PEG-INTERFERON ALFA 2A [Suspect]
     Active Substance: PEGINTERFERON ALFA-2A
     Indication: NEOPLASM
     Dosage: MOST RECENT DOSE PRIOR TO AE ONSET: AT 13:42 (180 MU)
     Route: 058
     Dates: start: 20170105
  69. PIPERACILLIN/TAZOBACTAM [Concomitant]
     Active Substance: PIPERACILLIN SODIUM\TAZOBACTAM SODIUM
     Indication: PNEUMONIA
     Route: 065
     Dates: start: 20170220, end: 20170228
  70. CARVEDILOL. [Concomitant]
     Active Substance: CARVEDILOL
     Indication: HYPERTENSION
     Route: 065
     Dates: start: 2014
  71. PANTOPRAZOLE [Concomitant]
     Active Substance: PANTOPRAZOLE
     Indication: GASTROOESOPHAGEAL REFLUX PROPHYLAXIS
     Route: 065
     Dates: start: 20170110, end: 20170110
  72. ZOLEDRONIC ACID [Concomitant]
     Active Substance: ZOLEDRONIC ACID
     Indication: HYPERCALCAEMIA
     Route: 065
     Dates: start: 20170126, end: 20170126
  73. ALBUTEROL. [Concomitant]
     Active Substance: ALBUTEROL
     Indication: RESPIRATORY FAILURE
     Route: 065
     Dates: start: 20170226, end: 20170317
  74. DENOSUMAB [Concomitant]
     Active Substance: DENOSUMAB
     Indication: HYPERCALCAEMIA
     Route: 065
     Dates: start: 20170228, end: 20170228
  75. DIPHENHYDRAMINE. [Concomitant]
     Active Substance: DIPHENHYDRAMINE
     Indication: RASH
     Route: 065
     Dates: start: 20170225, end: 20170226
  76. TEMAZEPAM. [Concomitant]
     Active Substance: TEMAZEPAM
     Indication: INSOMNIA
     Route: 065
     Dates: start: 20170222, end: 20170222
  77. WATER IRRIGANT [Concomitant]
     Indication: WOUND TREATMENT
     Route: 065
     Dates: start: 20170315, end: 20170317

REACTIONS (3)
  - Anaemia [Not Recovered/Not Resolved]
  - Transaminases increased [Not Recovered/Not Resolved]
  - Myasthenia gravis [Not Recovered/Not Resolved]

NARRATIVE: CASE EVENT DATE: 20170209
